FAERS Safety Report 5381489-0 (Version None)
Quarter: 2007Q2

REPORT INFORMATION
  Report Type: 
  Country: None (occurrence: None)
  Receive Date: 20070629
  Receipt Date: 20061120
  Transmission Date: 20071010
  Serious: Yes (Other)
  Sender: FDA-Public Use
  Company Number: 2006144255

PATIENT
  Age: 11 Year
  Sex: Female

DRUGS (1)
  1. SERTRALINE [Suspect]
     Indication: ANXIETY
     Dosage: 25 MG (25 MG, 1 IN 1 D)
     Dates: start: 20060922

REACTIONS (1)
  - ANXIETY [None]
